FAERS Safety Report 5834881-1 (Version None)
Quarter: 2008Q3

REPORT INFORMATION
  Report Type: 
  Country: None (occurrence: None)
  Receive Date: 20080801
  Receipt Date: 20080722
  Transmission Date: 20090109
  Serious: Yes (Death)
  Sender: FDA-Public Use
  Company Number: 2008JP000738

PATIENT
  Age: 25 Year
  Sex: Male

DRUGS (5)
  1. PROGRAF [Suspect]
     Indication: RENAL TRANSPLANT
     Dosage: 5 MG, ORAL ORAL
     Route: 048
     Dates: start: 20001214
  2. PREDONINE (PREDNISOLONE) [Concomitant]
  3. CELLCEPT [Concomitant]
  4. SIMULECT [Concomitant]
  5. ACYCLOVIR [Concomitant]

REACTIONS (10)
  - ANAEMIA [None]
  - ANOREXIA [None]
  - ENCEPHALITIS VIRAL [None]
  - HAEMODIALYSIS [None]
  - HERPES ZOSTER [None]
  - MALAISE [None]
  - MELAENA [None]
  - PAIN [None]
  - RENAL FAILURE CHRONIC [None]
  - VOMITING [None]
